FAERS Safety Report 18980925 (Version 1)
Quarter: 2021Q1

REPORT INFORMATION
  Report Type: Report from Study
  Country: FR (occurrence: FR)
  Receive Date: 20210308
  Receipt Date: 20210308
  Transmission Date: 20210420
  Serious: Yes (Hospitalization, Other)
  Sender: FDA-Public Use
  Company Number: FR-AMGEN-FRACT2020134407

PATIENT
  Age: 70 Year
  Sex: Female
  Weight: 66 kg

DRUGS (11)
  1. IRINOTECAN [Suspect]
     Active Substance: IRINOTECAN
     Indication: ADENOCARCINOMA OF COLON
     Dosage: 320 MILLIGRAM
     Route: 042
     Dates: start: 20200806
  2. OXYCODONE [Concomitant]
     Active Substance: OXYCODONE
     Dosage: 10 UNK
     Route: 048
     Dates: start: 20200806, end: 20200821
  3. PANITUMUMAB [Suspect]
     Active Substance: PANITUMUMAB
     Indication: ADENOCARCINOMA OF COLON
     Dosage: 400 MILLIGRAM
     Route: 042
     Dates: start: 20200806
  4. OXYCODONE [Concomitant]
     Active Substance: OXYCODONE
     Indication: PELVIC PAIN
     Dosage: 60 MILLIGRAM
     Route: 048
     Dates: start: 20200806, end: 20200821
  5. OXYNORM [Concomitant]
     Active Substance: OXYCODONE HYDROCHLORIDE
     Indication: PELVIC PAIN
     Dosage: 10 MILLIGRAM
     Route: 048
     Dates: start: 20200806, end: 20200821
  6. DOXYCYCLINE. [Concomitant]
     Active Substance: DOXYCYCLINE
     Indication: PROPHYLAXIS
     Dosage: 100 MILLIGRAM
     Route: 048
     Dates: start: 20200806
  7. LEVOFOLINATE [LEVOFOLINIC ACID] [Suspect]
     Active Substance: LEVOLEUCOVORIN
     Indication: ADENOCARCINOMA OF COLON
     Dosage: 350 MILLIGRAM
     Route: 042
     Dates: start: 20200806
  8. 5 FU [Suspect]
     Active Substance: FLUOROURACIL
     Indication: ADENOCARCINOMA OF COLON
     Dosage: 710 MILLIGRAM
     Route: 040
     Dates: start: 20200806
  9. 5 FU [Suspect]
     Active Substance: FLUOROURACIL
     Dosage: 4270 MILLIGRAM
     Route: 042
     Dates: start: 20200806
  10. OXALIPLATINE [Suspect]
     Active Substance: OXALIPLATIN
     Indication: ADENOCARCINOMA OF COLON
     Dosage: 150 MILLIGRAM
     Route: 042
     Dates: start: 20200806
  11. LOPERAMIDE [Concomitant]
     Active Substance: LOPERAMIDE
     Indication: DIARRHOEA
     Dosage: 2 MILLIGRAM
     Route: 048
     Dates: start: 20200806

REACTIONS (2)
  - Overdose [Recovered/Resolved]
  - Subileus [Recovered/Resolved with Sequelae]

NARRATIVE: CASE EVENT DATE: 20200806
